FAERS Safety Report 5619503-7 (Version None)
Quarter: 2008Q1

REPORT INFORMATION
  Report Type: 
  Country: None (occurrence: None)
  Receive Date: 20080111
  Receipt Date: 20070814
  Transmission Date: 20080703
  Serious: Yes (Other)
  Sender: FDA-Public Use
  Company Number: 07-001704

PATIENT
  Sex: Female

DRUGS (1)
  1. FEMCON FE [Suspect]
     Dosage: 0.4MG/35MCG

REACTIONS (1)
  - PULMONARY EMBOLISM [None]
